FAERS Safety Report 25963051 (Version 1)
Quarter: 2025Q4

REPORT INFORMATION
  Report Type: Spontaneous
  Country: US (occurrence: US)
  Receive Date: 20251027
  Receipt Date: 20251027
  Transmission Date: 20260117
  Serious: Yes (Other)
  Sender: CHEPLAPHARM
  Company Number: US-CHEPLA-2025012165

PATIENT
  Age: 6 Decade
  Sex: Female

DRUGS (4)
  1. CLONAZEPAM [Suspect]
     Active Substance: CLONAZEPAM
     Indication: Anxiety
     Dosage: TWICE DAILY?DAILY DOSE: 2 MILLIGRAM
  2. CLONAZEPAM [Suspect]
     Active Substance: CLONAZEPAM
     Indication: Anxiety
     Dosage: SOMETIMES, AN ADDITIONAL 1MG AT NIGHT?DAILY DOSE: 3 MILLIGRAM
  3. CLONAZEPAM [Suspect]
     Active Substance: CLONAZEPAM
     Indication: Anxiety
     Dosage: RESTARTED AT 1MG TWICE DAILY?DAILY DOSE: 2 MILLIGRAM
  4. OXYCODONE [Concomitant]
     Active Substance: OXYCODONE
     Indication: Pain

REACTIONS (6)
  - Hypokalaemia [Recovering/Resolving]
  - Drug withdrawal syndrome [Recovering/Resolving]
  - Phantosmia [Recovering/Resolving]
  - Tachycardia [Recovering/Resolving]
  - Feeding disorder [Recovering/Resolving]
  - Asthenia [Recovering/Resolving]
